FAERS Safety Report 24173020 (Version 1)
Quarter: 2024Q3

REPORT INFORMATION
  Report Type: Spontaneous
  Country: US (occurrence: None)
  Receive Date: 20240804
  Receipt Date: 20240804
  Transmission Date: 20241017
  Serious: No
  Sender: Public
  Company Number: None

PATIENT
  Age: 32 Year
  Sex: Female
  Weight: 58.5 kg

DRUGS (8)
  1. SKYRIZI [Suspect]
     Active Substance: RISANKIZUMAB-RZAA
     Indication: Psoriasis
     Dates: start: 20240716
  2. LITHIUM [Concomitant]
  3. LATUDA [Concomitant]
  4. LORAZEPAM [Concomitant]
     Active Substance: LORAZEPAM
  5. KARIVA [Concomitant]
     Active Substance: DESOGESTREL\ETHINYL ESTRADIOL
  6. Multivitamin [Concomitant]
  7. TMG [Concomitant]
  8. amino acid supplement [Concomitant]

REACTIONS (3)
  - Diarrhoea [None]
  - Decreased appetite [None]
  - Amenorrhoea [None]

NARRATIVE: CASE EVENT DATE: 20240726
